FAERS Safety Report 26194625 (Version 1)
Quarter: 2025Q4

REPORT INFORMATION
  Report Type: Spontaneous
  Country: EU (occurrence: EU)
  Receive Date: 20251224
  Receipt Date: 20251224
  Transmission Date: 20260118
  Serious: Yes (Other)
  Sender: REGENERON
  Company Number: None

PATIENT
  Age: 74 Year
  Sex: Female

DRUGS (5)
  1. PRALUENT [Suspect]
     Active Substance: ALIROCUMAB
     Indication: Hypercholesterolaemia
     Dosage: 75 IU, SOLUTION FOR INJECTION
     Route: 058
     Dates: start: 20240901, end: 20240901
  2. PREDNISONE [Concomitant]
     Active Substance: PREDNISONE
     Indication: Chronic obstructive pulmonary disease
     Dosage: 10 MG, QD
     Route: 048
     Dates: start: 201407
  3. BECLOMETHASONE [Concomitant]
     Active Substance: BECLOMETHASONE
     Indication: Chronic obstructive pulmonary disease
     Dosage: 12 UG, QD
     Dates: start: 20240513
  4. OMACOR [Concomitant]
     Active Substance: OMEGA-3-ACID ETHYL ESTERS
     Indication: Dyslipidaemia
     Dosage: 400 MG, QD
     Route: 048
     Dates: start: 20181106
  5. FORADIL [Concomitant]
     Active Substance: FORMOTEROL FUMARATE
     Indication: Chronic obstructive pulmonary disease
     Dosage: 24 UG, QD
     Dates: start: 201411, end: 20250429

REACTIONS (2)
  - Dyspnoea [Unknown]
  - Myalgia [Unknown]

NARRATIVE: CASE EVENT DATE: 20240902
